FAERS Safety Report 19014097 (Version 2)
Quarter: 2021Q2

REPORT INFORMATION
  Report Type: Report from Study
  Country: PL (occurrence: PL)
  Receive Date: 20210316
  Receipt Date: 20210407
  Transmission Date: 20210717
  Serious: Yes (Hospitalization)
  Sender: FDA-Public Use
  Company Number: PL-B.I. PHARMACEUTICALS,INC./RIDGEFIELD-2018-BI-053966

PATIENT
  Age: 77 Year
  Sex: Female
  Weight: 60.4 kg

DRUGS (1)
  1. PLACEBO [Suspect]
     Active Substance: UNSPECIFIED INGREDIENT
     Indication: CARDIAC FAILURE
     Route: 048

REACTIONS (1)
  - Gastric mucosa erythema [Recovered/Resolved]

NARRATIVE: CASE EVENT DATE: 20181023
